FAERS Safety Report 10773074 (Version 5)
Quarter: 2015Q2

REPORT INFORMATION
  Report Type: Report from Study
  Country: ES (occurrence: ES)
  Receive Date: 20150207
  Receipt Date: 20150514
  Transmission Date: 20150821
  Serious: Yes (Other)
  Sender: FDA-Public Use
  Company Number: PHHO2015ES001546

PATIENT
  Age: 21 Year
  Sex: Female
  Weight: 46.2 kg

DRUGS (3)
  1. PLACEBO [Suspect]
     Active Substance: UNSPECIFIED INGREDIENT
     Indication: PYREXIA
     Dosage: UNK
     Route: 058
     Dates: start: 20140904
  2. ACZ885 [Suspect]
     Active Substance: CANAKINUMAB
     Dosage: 150 MG/ML, UNK
     Route: 058
     Dates: start: 20150209
  3. ACZ885 [Suspect]
     Active Substance: CANAKINUMAB
     Indication: PYREXIA
     Dosage: 150 MG/ML, UNK
     Route: 058
     Dates: start: 20141003, end: 20150126

REACTIONS (1)
  - Rosacea [Recovered/Resolved with Sequelae]

NARRATIVE: CASE EVENT DATE: 20150117
